FAERS Safety Report 4520731-2 (Version None)
Quarter: 2004Q4

REPORT INFORMATION
  Report Type: 
  Country: None (occurrence: None)
  Receive Date: 20041028
  Receipt Date: 20040406
  Transmission Date: 20050328
  Serious: Yes (Hospitalization)
  Sender: FDA-Public Use
  Company Number: HQWYE374807APR04

PATIENT
  Age: 49 Year
  Sex: Female
  Weight: 78.54 kg

DRUGS (6)
  1. PREMARIN [Suspect]
     Indication: OESTROGEN REPLACEMENT THERAPY
     Dosage: 0.625 MG DAILY, ORAL
     Route: 048
     Dates: end: 20040224
  2. ENDOCET (OXYCODONE HYDROCHLORIDE/PARACETAMOL) [Concomitant]
  3. SEROQUEL [Concomitant]
  4. LIPITOR [Concomitant]
  5. FLUOXETINE [Concomitant]
  6. RANITIDINE [Concomitant]

REACTIONS (1)
  - PULMONARY EMBOLISM [None]
